FAERS Safety Report 10166065 (Version 2)
Quarter: 2014Q2

REPORT INFORMATION
  Report Type: Report from Study
  Country: CA (occurrence: CA)
  Receive Date: 20140512
  Receipt Date: 20140512
  Transmission Date: 20141212
  Serious: Yes (Other)
  Sender: FDA-Public Use
  Company Number: CA-ROCHE-1375285

PATIENT
  Age: 83 Year
  Sex: Female

DRUGS (10)
  1. RANIBIZUMAB [Suspect]
     Indication: AGE-RELATED MACULAR DEGENERATION
     Route: 050
     Dates: start: 20120307
  2. RANIBIZUMAB [Suspect]
     Dosage: RIGHT EYE
     Route: 065
     Dates: start: 20120523
  3. RANIBIZUMAB [Suspect]
     Dosage: RIGHT EYE
     Route: 065
     Dates: start: 20130208
  4. RANIBIZUMAB [Suspect]
     Dosage: LEFT EYE
     Route: 050
     Dates: start: 20130215
  5. RANIBIZUMAB [Suspect]
     Dosage: LEFT EYE
     Route: 050
     Dates: start: 20130409, end: 20130409
  6. PREDNISONE [Concomitant]
     Route: 065
     Dates: start: 2011
  7. ELTROXIN [Concomitant]
     Route: 065
     Dates: start: 1982
  8. ADVAIR [Concomitant]
     Route: 065
     Dates: start: 1992
  9. TYLENOL [Concomitant]
     Route: 065
     Dates: start: 20130715
  10. ACTONEL [Concomitant]
     Route: 065
     Dates: start: 20130715

REACTIONS (4)
  - Diabetes mellitus [Not Recovered/Not Resolved]
  - Intraocular pressure increased [Recovered/Resolved]
  - Open angle glaucoma [Unknown]
  - Macular hole [Recovered/Resolved]
